FAERS Safety Report 21955903 (Version 1)
Quarter: 2023Q1

REPORT INFORMATION
  Report Type: Spontaneous
  Country: AR (occurrence: AR)
  Receive Date: 20230206
  Receipt Date: 20230206
  Transmission Date: 20230418
  Serious: Yes (Hospitalization, Other)
  Sender: FDA-Public Use
  Company Number: AR-UCBSA-2023005674

PATIENT
  Age: 47 Year
  Sex: Male

DRUGS (2)
  1. KEPPRA [Suspect]
     Active Substance: LEVETIRACETAM
     Indication: Epilepsy
     Dosage: 4 DF, QD 4000 MG
  2. CARBAMAZEPINE [Concomitant]
     Active Substance: CARBAMAZEPINE
     Indication: Product used for unknown indication
     Dosage: UNK

REACTIONS (8)
  - Hospitalisation [Recovered/Resolved]
  - Seizure [Unknown]
  - Extremity contracture [Unknown]
  - Bite [Unknown]
  - Pain [Unknown]
  - Limb injury [Unknown]
  - Nervousness [Unknown]
  - Incorrect dose administered [Unknown]
